FAERS Safety Report 18554932 (Version 2)
Quarter: 2022Q1

REPORT INFORMATION
  Report Type: Spontaneous
  Country: BO (occurrence: BO)
  Receive Date: 20201127
  Receipt Date: 20220224
  Transmission Date: 20220423
  Serious: Yes (Other)
  Sender: FDA-Public Use
  Company Number: BO-NOVARTISPH-NVSC2020BO309903

PATIENT
  Sex: Female

DRUGS (2)
  1. GLIVEC [Suspect]
     Active Substance: IMATINIB MESYLATE
     Indication: Chronic myeloid leukaemia
     Dosage: 3 DF (3 OF 100MG)
     Route: 065
  2. GLIVEC [Suspect]
     Active Substance: IMATINIB MESYLATE
     Dosage: 300 MG (3X100 MG)
     Route: 065

REACTIONS (4)
  - Gastric cancer [Unknown]
  - Second primary malignancy [Unknown]
  - Gastrointestinal injury [Unknown]
  - Gastric disorder [Unknown]
